FAERS Safety Report 22321422 (Version 2)
Quarter: 2023Q2

REPORT INFORMATION
  Report Type: Other
  Country: IT (occurrence: IT)
  Receive Date: 20230515
  Receipt Date: 20230621
  Transmission Date: 20230722
  Serious: Yes (Other)
  Sender: FDA-Public Use
  Company Number: None

PATIENT
  Age: 3 Year
  Sex: Male

DRUGS (3)
  1. IOBENGUANE I-131 [Suspect]
     Active Substance: IOBENGUANE I-131
     Indication: Radiotherapy
     Dosage: UNK, SINGLE
     Route: 065
  2. IOBENGUANE I-131 [Suspect]
     Active Substance: IOBENGUANE I-131
     Indication: Neuroblastoma
  3. TANDEM [Suspect]
     Active Substance: FERROUS ASPARTO GLYCINATE\FERROUS FUMARATE
     Indication: Neuroblastoma
     Dosage: UNK

REACTIONS (1)
  - Neuroblastoma recurrent [Not Recovered/Not Resolved]
